FAERS Safety Report 12848485 (Version 1)
Quarter: 2016Q4

REPORT INFORMATION
  Report Type: Spontaneous
  Country: US (occurrence: US)
  Receive Date: 20161014
  Receipt Date: 20161014
  Transmission Date: 20170207
  Serious: No
  Sender: FDA-Public Use
  Company Number: US-JNJFOC-20160814691

PATIENT
  Age: 17 Year
  Sex: Male
  Weight: 102.51 kg

DRUGS (1)
  1. TYLENOL REGULAR STRENGTH [Suspect]
     Active Substance: ACETAMINOPHEN
     Indication: SUNBURN
     Dosage: UNSPECIFIED AMOUNT OF DOSE-ONCE A DAY
     Route: 048
     Dates: start: 20160815

REACTIONS (3)
  - Wrong technique in product usage process [Unknown]
  - Product use issue [Unknown]
  - Off label use [Unknown]

NARRATIVE: CASE EVENT DATE: 20160815
